FAERS Safety Report 13032560 (Version 1)
Quarter: 2016Q4

REPORT INFORMATION
  Report Type: Spontaneous
  Country: US (occurrence: US)
  Receive Date: 20161215
  Receipt Date: 20161215
  Transmission Date: 20170207
  Serious: Yes (Disabling)
  Sender: FDA-Public Use
  Company Number: US-PFIZER INC-2016576710

PATIENT
  Age: 47 Year
  Sex: Female
  Weight: 174 kg

DRUGS (3)
  1. LYRICA [Suspect]
     Active Substance: PREGABALIN
     Indication: COMPLEX REGIONAL PAIN SYNDROME
     Dosage: 225 MG, 2X/DAY
     Route: 048
     Dates: start: 2014
  2. LYRICA [Suspect]
     Active Substance: PREGABALIN
     Indication: SPINAL PAIN
     Dosage: 300 MG, UNK
  3. LYRICA [Suspect]
     Active Substance: PREGABALIN
     Indication: DIABETIC NEUROPATHY
     Dosage: 225 MG, UNK

REACTIONS (4)
  - Drug effect incomplete [Not Recovered/Not Resolved]
  - Body height decreased [Not Recovered/Not Resolved]
  - Feeling abnormal [Unknown]
  - Cardiac failure [Not Recovered/Not Resolved]

NARRATIVE: CASE EVENT DATE: 201512
